FAERS Safety Report 20437878 (Version 1)
Quarter: 2022Q1

REPORT INFORMATION
  Report Type: Spontaneous
  Country: CZ (occurrence: CZ)
  Receive Date: 20220207
  Receipt Date: 20220207
  Transmission Date: 20220423
  Serious: Yes (Life-Threatening, Other)
  Sender: FDA-Public Use
  Company Number: None

PATIENT
  Age: 58 Year
  Sex: Female
  Weight: 88 kg

DRUGS (4)
  1. PACLITAXEL [Suspect]
     Active Substance: PACLITAXEL
     Indication: Chemotherapy
     Dosage: 1X IN 21 DAYS?ROUTE OF ADMINISTRATION : INTRAVENOUS (NOT OTHERWISE SPECIFIED) .UNIT DOSE:400MG
     Route: 042
     Dates: start: 20211209, end: 20211209
  2. AKYNZEO [Concomitant]
     Active Substance: NETUPITANT\PALONOSETRON HYDROCHLORIDE
     Indication: Premedication
     Dosage: 1 HOUR BEFORE CHEMOTHERAPY?ROUTE OF ADMINISTRATION : ORAL .UNIT DOSE:300MG
     Route: 048
     Dates: start: 20190711, end: 20210209
  3. DEXAMETHASONE [Concomitant]
     Active Substance: DEXAMETHASONE
     Indication: Premedication
     Dosage: ROUTE OF ADMINISTRATION : INTRAVENOUS (NOT OTHERWISE SPECIFIED) .UNIT DOSE:8MG
     Route: 042
     Dates: start: 20190711, end: 20211209
  4. OMEPRAZOLE [Concomitant]
     Active Substance: OMEPRAZOLE
     Indication: Premedication
     Dosage: ROUTE OF ADMINISTRATION : INTRAVENOUS (NOT OTHERWISE SPECIFIED) .UNIT DOSE:40MG
     Route: 042
     Dates: start: 20190711, end: 20211209

REACTIONS (6)
  - Rash [Recovered/Resolved]
  - Swelling face [Recovered/Resolved]
  - Hypersensitivity [Recovered/Resolved]
  - Dyspnoea [Recovered/Resolved]
  - Diarrhoea [Recovered/Resolved]
  - Vertigo [Recovered/Resolved]

NARRATIVE: CASE EVENT DATE: 20211209
